FAERS Safety Report 6171026-5 (Version None)
Quarter: 2009Q2

REPORT INFORMATION
  Report Type: 
  Country: None (occurrence: None)
  Receive Date: 20090429
  Receipt Date: 20090420
  Transmission Date: 20091009
  Serious: Yes (Other)
  Sender: FDA-Public Use
  Company Number: CA-JNJFOC-20080900337

PATIENT
  Sex: Female

DRUGS (2)
  1. REMICADE [Suspect]
     Dosage: 2ND INFUSION
     Route: 042
  2. REMICADE [Suspect]
     Indication: COLITIS ULCERATIVE
     Dosage: 1ST INFUSION
     Route: 042

REACTIONS (7)
  - ANAPHYLACTIC SHOCK [None]
  - ASPHYXIA [None]
  - ASTHENIA [None]
  - HEADACHE [None]
  - INFUSION RELATED REACTION [None]
  - INSOMNIA [None]
  - VOMITING [None]
